FAERS Safety Report 5789282-1 (Version None)
Quarter: 2008Q2

REPORT INFORMATION
  Report Type: 
  Country: None (occurrence: None)
  Receive Date: 20080626
  Receipt Date: 20080109
  Transmission Date: 20081010
  Serious: No
  Sender: FDA-Public Use
  Company Number: US-ASTRAZENECA-2008UW00640

PATIENT
  Age: 64 Year
  Sex: Female
  Weight: 59 kg

DRUGS (5)
  1. PULMICORT-100 [Suspect]
     Indication: CHRONIC OBSTRUCTIVE PULMONARY DISEASE
     Route: 055
     Dates: start: 20071001
  2. SPIRIVA [Concomitant]
  3. DUONEB [Concomitant]
  4. SINGULAIR [Concomitant]
  5. BLOOD PRESSURE MEDICATIONS [Concomitant]

REACTIONS (1)
  - BLADDER DISCOMFORT [None]
